FAERS Safety Report 7845786-9 (Version None)
Quarter: 2011Q4

REPORT INFORMATION
  Report Type: 
  Country: None (occurrence: None)
  Receive Date: 20111025
  Receipt Date: 20111021
  Transmission Date: 20120403
  Serious: Yes (Death, Hospitalization, Other)
  Sender: FDA-Public Use
  Company Number: US-AMGEN-USASP2010009038

PATIENT
  Age: 63 Year
  Sex: Male

DRUGS (7)
  1. NPLATE [Suspect]
     Indication: IDIOPATHIC THROMBOCYTOPENIC PURPURA
     Dosage: 250 MUG, UNK
     Dates: start: 20090624, end: 20100810
  2. LEVAQUIN [Concomitant]
  3. NPLATE [Suspect]
     Dates: start: 20090707
  4. CORTICOSTEROIDS [Concomitant]
     Indication: IDIOPATHIC THROMBOCYTOPENIC PURPURA
     Dosage: UNK
     Dates: start: 19910101
  5. PREDNISONE [Concomitant]
     Indication: IDIOPATHIC THROMBOCYTOPENIC PURPURA
  6. ANTINEOPLASTIC AGENTS [Concomitant]
  7. IMMUNE GLOBULIN NOS [Concomitant]
     Indication: IDIOPATHIC THROMBOCYTOPENIC PURPURA

REACTIONS (11)
  - MULTIMORBIDITY [None]
  - CHILLS [None]
  - RENAL FAILURE [None]
  - UROSEPSIS [None]
  - CYSTITIS ESCHERICHIA [None]
  - RED BLOOD CELL COUNT DECREASED [None]
  - NAUSEA [None]
  - ACUTE MYOCARDIAL INFARCTION [None]
  - CARDIAC FAILURE [None]
  - URINARY TRACT INFECTION BACTERIAL [None]
  - RESPIRATORY FAILURE [None]
